FAERS Safety Report 7283235-2 (Version None)
Quarter: 2011Q1

REPORT INFORMATION
  Report Type: 
  Country: None (occurrence: None)
  Receive Date: 20110209
  Receipt Date: 20110128
  Transmission Date: 20110831
  Serious: Yes (Other)
  Sender: FDA-Public Use
  Company Number: PHFR2011GB00708

PATIENT
  Sex: Female

DRUGS (4)
  1. CLOZARIL [Suspect]
     Indication: PSYCHOTIC DISORDER
     Dosage: UNK MG, UNK
     Route: 048
     Dates: start: 20080624
  2. CLOZARIL [Suspect]
     Dosage: 75 MG, BID
     Route: 048
  3. LAMOTRIGINE [Concomitant]
     Indication: MOOD SWINGS
  4. LAMOTRIGINE [Concomitant]
     Indication: PSYCHOTIC DISORDER
     Dosage: 150 MG, QD
     Route: 048

REACTIONS (5)
  - NEUTROPHIL COUNT DECREASED [None]
  - INFECTION [None]
  - TACHYCARDIA [None]
  - MALAISE [None]
  - PYREXIA [None]
